FAERS Safety Report 9100568 (Version 1)
Quarter: 2013Q1

REPORT INFORMATION
  Report Type: Spontaneous
  Country: US (occurrence: US)
  Receive Date: 20130215
  Receipt Date: 20130215
  Transmission Date: 20140127
  Serious: Yes (Other)
  Sender: FDA-Public Use
  Company Number: US-PFIZER INC-2013057226

PATIENT
  Age: 79 Year
  Sex: Female
  Weight: 60.8 kg

DRUGS (1)
  1. ZYVOX [Suspect]
     Indication: URINARY TRACT INFECTION
     Dosage: 600 MG, 2X/DAY
     Route: 048
     Dates: start: 20130205, end: 20130211

REACTIONS (3)
  - Aphagia [Unknown]
  - Diarrhoea [Unknown]
  - Weight decreased [Unknown]
